FAERS Safety Report 7730857-8 (Version None)
Quarter: 2011Q3

REPORT INFORMATION
  Report Type: 
  Country: None (occurrence: None)
  Receive Date: 20110906
  Receipt Date: 20110825
  Transmission Date: 20111222
  Serious: Yes (Hospitalization, Other)
  Sender: FDA-Public Use
  Company Number: US-ACTELION-A-NJ2011-52810

PATIENT

DRUGS (11)
  1. ATENOLOL [Concomitant]
  2. EFFEXOR [Concomitant]
  3. TRICOR [Concomitant]
  4. ATIVAN [Concomitant]
  5. COUMADIN [Concomitant]
  6. OXYGEN [Concomitant]
  7. DIGOXIN [Concomitant]
  8. TRACLEER [Suspect]
     Indication: PULMONARY ARTERIAL HYPERTENSION
     Dosage: UNK
     Route: 048
     Dates: start: 20100929
  9. OMEPRAZOLE [Concomitant]
  10. LASIX [Concomitant]
  11. LISINOPRIL [Concomitant]

REACTIONS (5)
  - CARDIAC FAILURE ACUTE [None]
  - PULMONARY MASS [None]
  - URINARY TRACT INFECTION [None]
  - PNEUMONIA [None]
  - CHRONIC OBSTRUCTIVE PULMONARY DISEASE [None]
